FAERS Safety Report 23921893 (Version 3)
Quarter: 2024Q3

REPORT INFORMATION
  Report Type: Spontaneous
  Country: CA (occurrence: CA)
  Receive Date: 20240530
  Receipt Date: 20240716
  Transmission Date: 20241017
  Serious: Yes (Death, Other)
  Sender: ALEXION PHARMACEUTICALS
  Company Number: CA-AstraZeneca-CH-00636164A

PATIENT
  Age: 18 Year
  Sex: Male

DRUGS (4)
  1. SOLIRIS [Suspect]
     Active Substance: ECULIZUMAB
     Indication: Immune-complex membranoproliferative glomerulonephritis
     Dosage: 900 MILLIGRAM, QW
     Route: 042
     Dates: start: 20240111, end: 20240118
  2. SOLIRIS [Suspect]
     Active Substance: ECULIZUMAB
     Dosage: 900 MILLIGRAM, QID
     Route: 042
     Dates: start: 20240118, end: 20240122
  3. SOLIRIS [Suspect]
     Active Substance: ECULIZUMAB
     Dosage: 900 MILLIGRAM, QW
     Route: 042
     Dates: start: 20240122
  4. SOLIRIS [Suspect]
     Active Substance: ECULIZUMAB
     Dosage: 1200 MILLIGRAM, Q2W
     Route: 042

REACTIONS (2)
  - Meningococcal bacteraemia [Fatal]
  - Off label use [Unknown]

NARRATIVE: CASE EVENT DATE: 20240501
